FAERS Safety Report 12764937 (Version 2)
Quarter: 2016Q4

REPORT INFORMATION
  Report Type: Spontaneous
  Country: JP (occurrence: JP)
  Receive Date: 20160921
  Receipt Date: 20161019
  Transmission Date: 20170207
  Serious: Yes (Other)
  Sender: FDA-Public Use
  Company Number: JP-UCBSA-2016035195

PATIENT
  Age: 59 Year
  Sex: Male

DRUGS (4)
  1. POLYMYXIN B SULFATE. [Concomitant]
     Active Substance: POLYMYXIN B SULFATE
     Indication: PRODUCT USED FOR UNKNOWN INDICATION
     Dosage: 3 DF, ONCE DAILY (QD)
     Route: 048
  2. LIVACT [Concomitant]
     Active Substance: AMINO ACIDS
     Indication: PRODUCT USED FOR UNKNOWN INDICATION
     Dosage: 3 DF, ONCE DAILY (QD)
     Route: 048
  3. E KEPPRA [Suspect]
     Active Substance: LEVETIRACETAM
     Indication: EPILEPSY
     Dosage: 1000 MG DAILY
     Route: 048
     Dates: start: 20160819
  4. LACTULOSE. [Concomitant]
     Active Substance: LACTULOSE
     Indication: PRODUCT USED FOR UNKNOWN INDICATION
     Dosage: 3 DF, ONCE DAILY (QD)
     Route: 048

REACTIONS (1)
  - Bradycardia [Recovering/Resolving]

NARRATIVE: CASE EVENT DATE: 20160908
